FAERS Safety Report 19103420 (Version 6)
Quarter: 2021Q3

REPORT INFORMATION
  Report Type: Report from Study
  Country: NL (occurrence: NL)
  Receive Date: 20210407
  Receipt Date: 20210816
  Transmission Date: 20211014
  Serious: Yes (Hospitalization)
  Sender: FDA-Public Use
  Company Number: NL-ROCHE-2802637

PATIENT
  Age: 64 Year
  Sex: Male
  Weight: 69.9 kg

DRUGS (28)
  1. ATEZOLIZUMAB. [Suspect]
     Active Substance: ATEZOLIZUMAB
     Indication: NON-SMALL CELL LUNG CANCER
     Dosage: ON 07/JAN/2021, HE RECEIVED MOST RECENT DOSE 1200 MG PRIOR TO AE.?ON 18/MAR/2021, HE RECEIVED MOST R
     Route: 042
     Dates: start: 20200925
  2. NADROPARINE [Concomitant]
     Active Substance: NADROPARIN
     Indication: PROPHYLAXIS
     Dosage: 7600 U
     Route: 058
     Dates: start: 20210401, end: 20210401
  3. OXYCODONE [Concomitant]
     Active Substance: OXYCODONE
     Route: 048
     Dates: start: 20210311
  4. CEFAZOLINE [Concomitant]
     Active Substance: CEFAZOLIN SODIUM
     Indication: PROPHYLAXIS
     Route: 042
     Dates: start: 20210406, end: 20210406
  5. CIPROFLOXACINE [Concomitant]
     Active Substance: CIPROFLOXACIN
     Indication: URINARY TRACT INFECTION
     Dates: start: 20210702, end: 20210715
  6. VITAMINE B12 [Concomitant]
     Active Substance: CYANOCOBALAMIN
     Dates: start: 2015
  7. OXYCODONE [Concomitant]
     Active Substance: OXYCODONE
     Route: 048
     Dates: start: 20210202, end: 20210310
  8. PARACETAMOL [Concomitant]
     Active Substance: ACETAMINOPHEN
     Indication: PAIN
     Dates: start: 202003
  9. VITAMIN K [Concomitant]
     Active Substance: PHYTONADIONE
     Indication: INTERNATIONAL NORMALISED RATIO INCREASED
     Route: 048
     Dates: start: 20210614, end: 20210614
  10. COVID?19 VACCINE [Concomitant]
     Indication: COVID-19
     Dosage: ASTRA ZENECA
     Dates: start: 20210528, end: 20210528
  11. LOPERAMIDE [Concomitant]
     Active Substance: LOPERAMIDE
     Indication: DIARRHOEA
     Dates: start: 2011
  12. OXYCODONE [Concomitant]
     Active Substance: OXYCODONE
     Indication: ARTHRALGIA
     Dates: start: 202003
  13. CIPROFLOXACINE [Concomitant]
     Active Substance: CIPROFLOXACIN
     Dates: start: 20210804
  14. ACENOCOUMAROL [Concomitant]
     Active Substance: ACENOCOUMAROL
     Indication: PROPHYLAXIS
     Dates: start: 201010, end: 20210331
  15. OMEPRAZOLE. [Concomitant]
     Active Substance: OMEPRAZOLE
     Indication: PROPHYLAXIS
     Dates: start: 2010
  16. OXYCODONE [Concomitant]
     Active Substance: OXYCODONE
     Indication: PAIN
     Dates: start: 20200916
  17. NADROPARINE [Concomitant]
     Active Substance: NADROPARIN
     Route: 058
     Dates: start: 20210406, end: 20210408
  18. MIDAZOLAM. [Concomitant]
     Active Substance: MIDAZOLAM
     Indication: PROPHYLAXIS
     Route: 042
     Dates: start: 20210406, end: 20210406
  19. AUGMENTIN [Concomitant]
     Active Substance: AMOXICILLIN\CLAVULANATE POTASSIUM
     Indication: URINARY TRACT INFECTION
  20. PLACEBO [Suspect]
     Active Substance: UNSPECIFIED INGREDIENT
     Indication: NON-SMALL CELL LUNG CANCER
     Dosage: ON 07/JAN/2021, HE RECEIVED MOST RECENT DOSE OF STUDY DRUG PRIOR TO AE.?ON 18/MAR/2021, HE RECEIVED
     Route: 042
     Dates: start: 20200925
  21. PREGABALINE [Concomitant]
     Active Substance: PREGABALIN
     Indication: PAIN
     Dates: start: 20200916
  22. ZOMETA [Concomitant]
     Active Substance: ZOLEDRONIC ACID
     Indication: PROPHYLAXIS
     Dates: start: 20200907
  23. TOPICORTE [Concomitant]
     Active Substance: DESOXIMETASONE
     Indication: HAEMORRHOIDS
     Route: 061
     Dates: start: 20201215
  24. FYTOMENADION [Concomitant]
     Active Substance: PHYTONADIONE
     Indication: INTERNATIONAL NORMALISED RATIO INCREASED
     Route: 048
     Dates: start: 20210401, end: 20210401
  25. AUGMENTIN [Concomitant]
     Active Substance: AMOXICILLIN\CLAVULANATE POTASSIUM
     Indication: MALAISE
     Dates: start: 20210611, end: 20210614
  26. ACENOCOUMAROL [Concomitant]
     Active Substance: ACENOCOUMAROL
     Route: 048
     Dates: start: 20210409
  27. PARACETAMOL [Concomitant]
     Active Substance: ACETAMINOPHEN
     Indication: CHILLS
     Route: 048
     Dates: start: 20210310, end: 20210311
  28. NORTRIPTYLINE [Concomitant]
     Active Substance: NORTRIPTYLINE
     Indication: ARTHRALGIA
     Dates: start: 20210809

REACTIONS (1)
  - Nephropathy toxic [Not Recovered/Not Resolved]

NARRATIVE: CASE EVENT DATE: 20210125
